FAERS Safety Report 9270377 (Version 1)
Quarter: 2013Q2

REPORT INFORMATION
  Report Type: Spontaneous
  Country: GR (occurrence: GR)
  Receive Date: 20130503
  Receipt Date: 20130503
  Transmission Date: 20140414
  Serious: Yes (Other)
  Sender: FDA-Public Use
  Company Number: GR-JHP PHARMACEUTICALS, LLC-JHP201300277

PATIENT
  Age: 26 Year
  Sex: Male

DRUGS (3)
  1. COLY-MYCIN M PARENTERAL [Suspect]
     Indication: ACINETOBACTER INFECTION
     Dosage: 40 MG EVERY 24 HRS INTRAVENTRICULAR
     Route: 050
  2. COLY-MYCIN M PARENTERAL [Suspect]
     Dosage: 20 MG EVERY 48 HOURS INTRAVENTRICULAR
     Route: 050
  3. COLY-MYCIN M PARENTERAL [Suspect]
     Dosage: 240 MG EVERY 8 HOURS
     Route: 042

REACTIONS (1)
  - CNS ventriculitis [Recovered/Resolved]
